FAERS Safety Report 25940958 (Version 1)
Quarter: 2025Q4

REPORT INFORMATION
  Report Type: Spontaneous
  Country: CN (occurrence: CN)
  Receive Date: 20251020
  Receipt Date: 20251020
  Transmission Date: 20260118
  Serious: Yes (Hospitalization, Other)
  Sender: ASTELLAS
  Company Number: CN-ASTELLAS-2025-AER-057263

PATIENT
  Age: 32 Year
  Sex: Female

DRUGS (4)
  1. TACROLIMUS [Suspect]
     Active Substance: TACROLIMUS
     Indication: Thrombocytopenia
     Route: 065
  2. ISAVUCONAZOLE [Suspect]
     Active Substance: ISAVUCONAZOLE
     Indication: Disseminated mucormycosis
     Route: 065
  3. ORELABRUTINIB [Concomitant]
     Active Substance: ORELABRUTINIB
     Indication: Thrombocytopenia
     Route: 065
  4. PREDNISONE [Concomitant]
     Active Substance: PREDNISONE
     Indication: Thrombocytopenia
     Route: 065

REACTIONS (11)
  - Disseminated mucormycosis [Recovering/Resolving]
  - Gastrointestinal mucormycosis [Recovering/Resolving]
  - Pancreatitis [Recovering/Resolving]
  - Pneumonia [Recovering/Resolving]
  - Cerebrovascular disorder [Recovering/Resolving]
  - Mucormycosis [Recovering/Resolving]
  - Intracranial infection [Recovering/Resolving]
  - Pneumonia bacterial [Recovering/Resolving]
  - Pseudomonas infection [Recovering/Resolving]
  - Off label use [Unknown]
  - Drug ineffective [Unknown]
